FAERS Safety Report 9735437 (Version 1)
Quarter: 2013Q4

REPORT INFORMATION
  Report Type: Spontaneous
  Country: US (occurrence: US)
  Receive Date: 20131206
  Receipt Date: 20131206
  Transmission Date: 20140711
  Serious: No
  Sender: FDA-Public Use
  Company Number: US-GILEAD-2009-0022850

PATIENT
  Sex: Male
  Weight: 105.23 kg

DRUGS (10)
  1. LETAIRIS [Suspect]
     Indication: PULMONARY ARTERIAL HYPERTENSION
     Route: 048
     Dates: start: 20090429
  2. LOVASTATIN [Concomitant]
  3. LISINOPRIL/HCTZ [Concomitant]
  4. COUMADIN [Concomitant]
  5. TRIAMTERENE [Concomitant]
  6. GLUCOPHAGE [Concomitant]
  7. GLIPIZIDE [Concomitant]
  8. COLCHICINE [Concomitant]
  9. LORAZEPAM [Concomitant]
  10. PREVACID [Concomitant]

REACTIONS (5)
  - Anxiety [Unknown]
  - Panic attack [Unknown]
  - Confusional state [Unknown]
  - Hallucination [Unknown]
  - Dyspnoea [Unknown]
